FAERS Safety Report 7484857-6 (Version None)
Quarter: 2011Q2

REPORT INFORMATION
  Report Type: 
  Country: None (occurrence: None)
  Receive Date: 20110517
  Receipt Date: 20110510
  Transmission Date: 20111010
  Serious: Yes (Hospitalization)
  Sender: FDA-Public Use
  Company Number: A0779280A

PATIENT
  Age: 68 Year
  Sex: Female
  Weight: 87.7 kg

DRUGS (6)
  1. NEXIUM [Concomitant]
  2. ACCUPRIL [Concomitant]
  3. AVANDIA [Suspect]
     Indication: DIABETES MELLITUS
     Dosage: 4MG TWICE PER DAY
     Route: 048
     Dates: start: 20011101, end: 20050729
  4. GLYBURIDE [Concomitant]
  5. PROTONIX [Concomitant]
  6. NEURONTIN [Concomitant]

REACTIONS (6)
  - PULMONARY OEDEMA [None]
  - CARDIAC FAILURE CONGESTIVE [None]
  - MYOCARDIAL INFARCTION [None]
  - MYOCARDIAL ISCHAEMIA [None]
  - PERICARDIAL EFFUSION [None]
  - ISCHAEMIC CARDIOMYOPATHY [None]
